FAERS Safety Report 8914185 (Version 3)
Quarter: 2012Q4

REPORT INFORMATION
  Report Type: 
  Country: JP (occurrence: JP)
  Receive Date: 20121119
  Receipt Date: 20121210
  Transmission Date: 20130627
  Serious: Yes (Other)
  Sender: FDA-Public Use
  Company Number: JP-JNJFOC-20121102144

PATIENT
  Age: 68 Year
  Sex: Female

DRUGS (4)
  1. TRAMCET [Suspect]
     Indication: PAIN
     Dosage: 3 per day
     Route: 048
     Dates: start: 20121009, end: 20121015
  2. NAUZELIN [Suspect]
     Indication: PRODUCT USED FOR UNKNOWN INDICATION
     Dosage: 1 per day (as needed)
     Route: 065
  3. MUCOSTA [Concomitant]
     Route: 065
  4. MYONAL [Concomitant]
     Route: 048

REACTIONS (1)
  - Dyskinesia [Recovered/Resolved]
